FAERS Safety Report 18649834 (Version 2)
Quarter: 2020Q4

REPORT INFORMATION
  Report Type: Spontaneous
  Country: ES (occurrence: ES)
  Receive Date: 20201222
  Receipt Date: 20201229
  Transmission Date: 20210114
  Serious: Yes (Life-Threatening, Hospitalization)
  Sender: FDA-Public Use
  Company Number: ES-TEVA-2020-ES-1859606

PATIENT
  Age: 59 Year
  Sex: Female

DRUGS (4)
  1. VENLAFAXINA 75 MG COMPRIMIDOS , 60 COMPRIMIDOS [Suspect]
     Active Substance: VENLAFAXINE HYDROCHLORIDE
     Indication: SUICIDE ATTEMPT
     Dosage: 2700 MILLIGRAM DAILY; 1 TABLET AT BREAKFAST, 1 TABLET AT DINNER,
     Route: 048
     Dates: start: 20201120, end: 20201120
  2. LORAZEPAM 1 MG COMPRIMIDOS EFG, 25 COMPRIMIDOS [Interacting]
     Active Substance: LORAZEPAM
     Indication: SUICIDE ATTEMPT
     Dosage: UNIT DOSE 6MG, LORAZEPAM 1 MG COMPRIMIDOS EFG, 25 COMPRIMIDOS
     Route: 048
     Dates: start: 20201120, end: 20201120
  3. PERMIXON [SERENOA REPENS] [Suspect]
     Active Substance: HERBALS\SAW PALMETTO
     Indication: SUICIDE ATTEMPT
     Dosage: UNIT DOSE : 1760 MG, 11 PERMIXON TABLETS
     Route: 048
     Dates: start: 20201120, end: 20201120
  4. BROMAZEPAM 1,5 MG CAPSULAS EFG, 30 CAPSULAS [Interacting]
     Active Substance: BROMAZEPAM
     Indication: SUICIDE ATTEMPT
     Dosage: 31.5 MILLIGRAM DAILY; 1 TABLET AT DINNER
     Route: 048
     Dates: start: 20201120, end: 20201120

REACTIONS (3)
  - Coma [Recovered/Resolved]
  - Tonic convulsion [Recovered/Resolved]
  - Drug interaction [Unknown]

NARRATIVE: CASE EVENT DATE: 20201120
